FAERS Safety Report 17573232 (Version 1)
Quarter: 2020Q1

REPORT INFORMATION
  Report Type: Spontaneous
  Country: GB (occurrence: GB)
  Receive Date: 20200323
  Receipt Date: 20200323
  Transmission Date: 20200409
  Serious: Yes (Disabling)
  Sender: FDA-Public Use
  Company Number: GB-MYLANLABS-2020M1029394

PATIENT
  Age: 86 Year
  Sex: Female
  Weight: 58 kg

DRUGS (21)
  1. CALCI-D [Concomitant]
     Active Substance: CALCIUM CARBONATE\CHOLECALCIFEROL
     Dosage: 1 DOSAGE FORM, QD
     Route: 048
     Dates: start: 20190924
  2. PREDNISOLONE. [Concomitant]
     Active Substance: PREDNISOLONE
     Dosage: 6 DOSAGE FORM, QD
     Dates: start: 20190924
  3. AMLODIPINE [Concomitant]
     Active Substance: AMLODIPINE BESYLATE
     Dosage: 1 DOSAGE FORM, QD
     Dates: start: 20190924
  4. SALBUTAMOL [Concomitant]
     Active Substance: ALBUTEROL
     Dosage: 2 DOSAGE FORM, PRN (UP TO FOUR TIMES A DAY)
     Route: 055
     Dates: start: 20190924
  5. DOXYCYCLINE. [Suspect]
     Active Substance: DOXYCYCLINE
     Indication: PRODUCT USED FOR UNKNOWN INDICATION
     Dosage: 200 MILLIGRAM, QD (TWO NOW THEN ONE DAILY)
     Route: 065
     Dates: start: 20191230, end: 20191230
  6. NEFOPAM [Concomitant]
     Active Substance: NEFOPAM
     Dosage: 6 DOSAGE FORM, QD
     Dates: start: 20191202, end: 20191217
  7. ESOMEPRAZOLE. [Concomitant]
     Active Substance: ESOMEPRAZOLE MAGNESIUM
     Dosage: 3 DOSAGE FORM, QD (2 TO BE TAKEN EACH MORNING AND 1 NIGHT)
     Dates: start: 20190924
  8. SENNA                              /00142201/ [Concomitant]
     Active Substance: SENNA LEAF
     Dosage: 2 DOSAGE FORM, QD (NIGHT)
     Dates: start: 20190924
  9. COCODAMOL [Concomitant]
     Active Substance: ACETAMINOPHEN\CODEINE PHOSPHATE
     Dosage: UNK (TAKE 1 OR 2, 4 TIMES/DAY)
     Dates: start: 20191125, end: 20191223
  10. LEVOTHYROXINE. [Concomitant]
     Active Substance: LEVOTHYROXINE
     Dosage: 1 DOSAGE FORM, QD (EACH MORNING)
     Dates: start: 20190924
  11. DOXYCYCLINE. [Suspect]
     Active Substance: DOXYCYCLINE
     Dosage: 100 MILLIGRAM, QD
     Route: 065
     Dates: start: 20191231
  12. IBUPROFEN. [Concomitant]
     Active Substance: IBUPROFEN
     Dosage: UNK (APPLY 3-4 TIMES/DAY)
     Route: 061
     Dates: start: 20191125, end: 20191223
  13. GAVISCON ADVANCE                   /01340901/ [Concomitant]
     Dosage: UNK (5ML - 10ML 4 TIMES/DAY)
     Dates: start: 20190924
  14. FORTISIP [Concomitant]
     Active Substance: CARBOHYDRATES\FATTY ACIDS\MINERALS\PROTEIN\VITAMINS
     Dosage: UNK (USE AS DIRECTED)
     Dates: start: 20191118
  15. CARBOCISTEINE [Concomitant]
     Active Substance: CARBOCYSTEINE
     Dosage: 6 DOSAGE FORM, QD
     Dates: start: 20190924
  16. ALGESAL                            /00021209/ [Concomitant]
     Dosage: 3 DOSAGE FORM, QD (MASSAGE INTO AFFECTED AREA UNTIL CREAM IS FULLY ABSORBED)
     Route: 061
     Dates: start: 20191209, end: 20191210
  17. SYMBICORT [Concomitant]
     Active Substance: BUDESONIDE\FORMOTEROL FUMARATE DIHYDRATE
     Dosage: 4 DOSAGE FORM, QD (PUFFS)
     Dates: start: 20190924
  18. ACETYLSALICYLIC ACID [Concomitant]
     Active Substance: ASPIRIN
     Dosage: 1 DOSAGE FORM, QD
     Dates: start: 20190924
  19. AMOXICILLIN. [Concomitant]
     Active Substance: AMOXICILLIN
     Dosage: 3 DOSAGE FORM, QD
     Dates: start: 20190924
  20. BRALTUS [Concomitant]
     Active Substance: TIOTROPIUM BROMIDE
     Dosage: 1 DOSAGE FORM, QD
     Route: 055
     Dates: start: 20190924
  21. LACTULOSE. [Concomitant]
     Active Substance: LACTULOSE
     Dosage: 30 MILLILITER, QD
     Dates: start: 20190924

REACTIONS (1)
  - Epigastric discomfort [Recovered/Resolved]

NARRATIVE: CASE EVENT DATE: 20200108
